FAERS Safety Report 6704434-1 (Version None)
Quarter: 2010Q2

REPORT INFORMATION
  Report Type: 
  Country: None (occurrence: None)
  Receive Date: 20100430
  Receipt Date: 20100428
  Transmission Date: 20101027
  Serious: Yes (Hospitalization)
  Sender: FDA-Public Use
  Company Number: CH-BRISTOL-MYERS SQUIBB COMPANY-15083355

PATIENT
  Age: 65 Year
  Sex: Male

DRUGS (6)
  1. CISPLATIN [Suspect]
     Indication: MESOTHELIOMA
     Route: 042
     Dates: start: 20090722, end: 20090903
  2. ALIMTA [Suspect]
     Indication: MESOTHELIOMA
     Route: 042
     Dates: start: 20090722, end: 20090903
  3. RADIATION THERAPY [Suspect]
     Indication: MESOTHELIOMA
     Dosage: 45DF=45GY
     Route: 065
     Dates: start: 20100120, end: 20100305
  4. METOPROLOL SUCCINATE [Concomitant]
  5. LYRICA [Concomitant]
  6. PARIET [Concomitant]

REACTIONS (1)
  - PLEURAL EFFUSION [None]
